FAERS Safety Report 8326192-X (Version None)
Quarter: 2012Q2

REPORT INFORMATION
  Report Type: 
  Country: None (occurrence: None)
  Receive Date: 20120501
  Receipt Date: 20100615
  Transmission Date: 20120825
  Serious: No
  Sender: FDA-Public Use
  Company Number: US-TEVA-2010003255

PATIENT
  Sex: Female
  Weight: 86.26 kg

DRUGS (3)
  1. REBIF [Concomitant]
  2. NUVIGIL [Suspect]
     Indication: FATIGUE
     Route: 048
     Dates: start: 20100401
  3. AMPRYA [Suspect]
     Indication: MULTIPLE SCLEROSIS
     Dosage: 20 MILLIGRAM;
     Dates: start: 20100514

REACTIONS (1)
  - INSOMNIA [None]
